FAERS Safety Report 24593151 (Version 1)
Quarter: 2024Q4

REPORT INFORMATION
  Report Type: Report from Study
  Country: CA (occurrence: CA)
  Receive Date: 20241108
  Receipt Date: 20241108
  Transmission Date: 20250114
  Serious: Yes (Other)
  Sender: TAKEDA
  Company Number: CA-TAKEDA-2024TUS111615

PATIENT
  Age: 75 Year
  Sex: Female

DRUGS (20)
  1. VEDOLIZUMAB [Suspect]
     Active Substance: VEDOLIZUMAB
     Indication: Crohn^s disease
     Dosage: 300 MILLIGRAM
     Route: 042
     Dates: start: 20230222
  2. VEDOLIZUMAB [Suspect]
     Active Substance: VEDOLIZUMAB
     Dosage: 300 MILLIGRAM, Q4WEEKS
     Route: 042
     Dates: start: 20241004
  3. PANTOPRAZOLE [Concomitant]
     Active Substance: PANTOPRAZOLE
     Dosage: UNK
  4. CANDESARTAN [Concomitant]
     Active Substance: CANDESARTAN
     Dosage: UNK
  5. ALLOPURINOL [Concomitant]
     Active Substance: ALLOPURINOL
     Dosage: UNK
  6. ALLOPURINOL [Concomitant]
     Active Substance: ALLOPURINOL
     Dosage: 100 MILLIGRAM
  7. COLCHICINE [Concomitant]
     Active Substance: COLCHICINE
     Dosage: UNK
  8. CITALOPRAM [Concomitant]
     Active Substance: CITALOPRAM
     Dosage: UNK
  9. SPIRONOLACTONE [Concomitant]
     Active Substance: SPIRONOLACTONE
     Dosage: UNK
  10. ROSUVASTATIN [Concomitant]
     Active Substance: ROSUVASTATIN
     Dosage: 10 MILLIGRAM
  11. VITAMIN D [Concomitant]
     Active Substance: VITAMIN D NOS
     Dosage: UNK
  12. VITAMIN D [Concomitant]
     Active Substance: VITAMIN D NOS
     Dosage: 3000 INTERNATIONAL UNIT
  13. MAGNESIUM [Concomitant]
     Active Substance: MAGNESIUM
     Dosage: UNK
  14. LORAZEPAM [Concomitant]
     Active Substance: LORAZEPAM
     Dosage: UNK UNK, QD
  15. VITAMIN B12 [Concomitant]
     Active Substance: CYANOCOBALAMIN
     Dosage: UNK
  16. VITAMIN B12 [Concomitant]
     Active Substance: CYANOCOBALAMIN
     Dosage: 1000 MICROGRAM
  17. MIDODRINE [Concomitant]
     Active Substance: MIDODRINE
     Dosage: 15 MILLIGRAM
  18. PREDNISONE [Concomitant]
     Active Substance: PREDNISONE
     Dosage: 10 MILLIGRAM
  19. PANTOPRAZOLE SODIUM [Concomitant]
     Active Substance: PANTOPRAZOLE SODIUM
     Dosage: 80 MILLIGRAM
  20. CELEXA [Concomitant]
     Active Substance: CITALOPRAM HYDROBROMIDE
     Dosage: 20 MILLIGRAM

REACTIONS (2)
  - Atrial fibrillation [Unknown]
  - Off label use [Unknown]

NARRATIVE: CASE EVENT DATE: 20241004
